FAERS Safety Report 8575537-4 (Version None)
Quarter: 2012Q3

REPORT INFORMATION
  Report Type: 
  Country: None (occurrence: None)
  Receive Date: 20120807
  Receipt Date: 20120730
  Transmission Date: 20120928
  Serious: Yes (Hospitalization)
  Sender: FDA-Public Use
  Company Number: US-US-EMD SERONO, INC.-7151668

PATIENT
  Sex: Male

DRUGS (2)
  1. EGRIFTA [Suspect]
     Indication: LIPODYSTROPHY ACQUIRED
     Dates: start: 20110801
  2. TESTOTERONE INJECTIONS [Suspect]
     Indication: BLOOD TESTOSTERONE DECREASED

REACTIONS (1)
  - INJECTION SITE CELLULITIS [None]
